FAERS Safety Report 8862873 (Version 1)
Quarter: 2012Q4

REPORT INFORMATION
  Report Type: 
  Country: US (occurrence: US)
  Receive Date: 20121026
  Receipt Date: 20121026
  Transmission Date: 20130627
  Serious: Yes (Other)
  Sender: FDA-Public Use
  Company Number: US-ASTRAZENECA-2011SE55014

PATIENT
  Age: 64 Year
  Sex: Female
  Weight: 84.8 kg

DRUGS (13)
  1. CRESTOR [Suspect]
     Indication: HYPERLIPIDAEMIA
     Route: 048
  2. CELEBREX [Concomitant]
     Route: 048
  3. DIOVAN [Concomitant]
     Route: 048
  4. COUMADIN [Concomitant]
     Dosage: AS DIRECTED
  5. AMLODIPINE BESYLATE [Concomitant]
     Route: 048
  6. ALPRAZOLAM [Concomitant]
     Dosage: ONE OR TWO DAILY
  7. VESICARE [Concomitant]
     Route: 048
  8. HYDROCODONE-ACETAMINOPHEN [Concomitant]
     Dosage: 10/325 MG, ONE TABLET 4-6 HOURS AS NEEDED
     Route: 048
  9. PREMARIN [Concomitant]
     Route: 048
  10. EFFEXOR XR [Concomitant]
     Route: 048
  11. FORTAMET [Concomitant]
     Route: 048
  12. DEXILANT [Concomitant]
     Route: 048
  13. GABAPENTIN [Concomitant]
     Route: 048

REACTIONS (1)
  - Arthralgia [Unknown]
